FAERS Safety Report 24034823 (Version 1)
Quarter: 2024Q2

REPORT INFORMATION
  Report Type: Spontaneous
  Country: US (occurrence: None)
  Receive Date: 20240628
  Receipt Date: 20240628
  Transmission Date: 20240715
  Serious: Yes (Other)
  Sender: FDA-Public Use
  Company Number: None

PATIENT
  Age: 58 Year
  Sex: Female
  Weight: 76.32 kg

DRUGS (13)
  1. ZEPBOUND [Suspect]
     Active Substance: TIRZEPATIDE
     Indication: Obesity
     Dosage: 1 INJECTION ONCE A WEEK SUBCUTANEOUS ?
     Route: 058
  2. DULOXETINE [Concomitant]
  3. pulmozyne [Concomitant]
  4. sodium inhalation [Concomitant]
  5. SINGULAIR [Concomitant]
     Active Substance: MONTELUKAST SODIUM
  6. SYMBICORT [Concomitant]
     Active Substance: BUDESONIDE\FORMOTEROL FUMARATE DIHYDRATE
  7. ventilin [Concomitant]
  8. hydrochlorothyrazide [Concomitant]
  9. 2 calCium [Concomitant]
  10. one a day womens [Concomitant]
  11. FISH OIL [Concomitant]
  12. magnesium chew [Concomitant]
  13. glucosamine w chondroitun [Concomitant]

REACTIONS (5)
  - Panic attack [None]
  - Palpitations [None]
  - Tongue discomfort [None]
  - Anxiety [None]
  - Akathisia [None]

NARRATIVE: CASE EVENT DATE: 20240427
